FAERS Safety Report 5870546-8 (Version None)
Quarter: 2008Q3

REPORT INFORMATION
  Report Type: 
  Country: None (occurrence: None)
  Receive Date: 20080904
  Receipt Date: 20080827
  Transmission Date: 20090109
  Serious: Yes (Hospitalization)
  Sender: FDA-Public Use
  Company Number: US-AMGEN-US296945

PATIENT
  Sex: Male

DRUGS (16)
  1. PANITUMUMAB [Suspect]
     Indication: COLORECTAL CANCER
     Route: 042
     Dates: start: 20071018, end: 20071018
  2. PANITUMUMAB [Suspect]
     Route: 042
     Dates: start: 20080709, end: 20080709
  3. PANITUMUMAB [Suspect]
     Route: 042
     Dates: start: 20080813
  4. POTASSIUM CHLORIDE [Concomitant]
     Route: 048
  5. IMODIUM [Concomitant]
  6. SERTRALINE [Concomitant]
     Route: 048
  7. MEGACE [Concomitant]
     Route: 048
  8. PERCOCET [Concomitant]
     Route: 048
  9. ATIVAN [Concomitant]
  10. MARINOL [Concomitant]
     Route: 048
  11. DICYCLOMINE HYDROCHLORIDE [Concomitant]
     Route: 048
  12. IRINOTECAN HCL [Concomitant]
     Dates: start: 20071018
  13. FLUOROURACIL [Concomitant]
     Dates: start: 20071018
  14. LEUCOVORIN CALCIUM [Concomitant]
     Dates: start: 20071018
  15. VITAMIN K TAB [Concomitant]
     Dates: start: 20080711, end: 20080711
  16. COUMADIN [Concomitant]
     Route: 065
     Dates: start: 20080706, end: 20080723

REACTIONS (2)
  - DEEP VEIN THROMBOSIS [None]
  - PNEUMONIA [None]
